FAERS Safety Report 11793335 (Version 1)
Quarter: 2015Q4

REPORT INFORMATION
  Report Type: Spontaneous
  Country: US (occurrence: US)
  Receive Date: 20151202
  Receipt Date: 20151202
  Transmission Date: 20160305
  Serious: No
  Sender: FDA-Public Use
  Company Number: US-BAYER-2015-479423

PATIENT
  Age: 76 Year
  Sex: Male
  Weight: 55.33 kg

DRUGS (2)
  1. ALEVE [Suspect]
     Active Substance: NAPROXEN SODIUM
     Indication: ARTHRITIS
     Dosage: UNK, QD
     Route: 048
     Dates: start: 2000
  2. ALEVE [Suspect]
     Active Substance: NAPROXEN SODIUM
     Indication: ARTHRITIS
     Dosage: UNK, QD
     Route: 048

REACTIONS (3)
  - Product use issue [None]
  - Peripheral swelling [Not Recovered/Not Resolved]
  - Therapeutic response unexpected [None]

NARRATIVE: CASE EVENT DATE: 20151127
